FAERS Safety Report 17016726 (Version 1)
Quarter: 2019Q4

REPORT INFORMATION
  Report Type: Spontaneous
  Country: AU (occurrence: AU)
  Receive Date: 20191110
  Receipt Date: 20191110
  Transmission Date: 20200122
  Serious: Yes (Other)
  Sender: FDA-Public Use
  Company Number: None

PATIENT
  Age: 41 Year
  Sex: Female
  Weight: 67 kg

DRUGS (2)
  1. REPATHA [Suspect]
     Active Substance: EVOLOCUMAB
     Indication: TYPE IIA HYPERLIPIDAEMIA
     Dosage: ?          QUANTITY:1 INJECTION(S);OTHER FREQUENCY:EVERY 2 WEEKKS;?
     Route: 030
     Dates: start: 20191009
  2. SPIRULINA [Concomitant]
     Active Substance: SPIRULINA

REACTIONS (2)
  - Menstruation irregular [None]
  - Metrorrhagia [None]

NARRATIVE: CASE EVENT DATE: 20191029
